FAERS Safety Report 5934659-4 (Version None)
Quarter: 2008Q4

REPORT INFORMATION
  Report Type: 
  Country: None (occurrence: None)
  Receive Date: 20081010
  Receipt Date: 20080730
  Transmission Date: 20090506
  Serious: No
  Sender: FDA-Public Use
  Company Number: 2008BM000154

PATIENT
  Age: 21 Year
  Sex: Female
  Weight: 71 kg

DRUGS (1)
  1. KUVAN [Suspect]
     Indication: PHENYLKETONURIA
     Dosage: 20 MG/KG;QD;PO
     Route: 048
     Dates: start: 20080510, end: 20080523

REACTIONS (1)
  - DIARRHOEA [None]
